FAERS Safety Report 17905642 (Version 1)
Quarter: 2020Q2

REPORT INFORMATION
  Report Type: Spontaneous
  Country: US (occurrence: US)
  Receive Date: 20200616
  Receipt Date: 20200616
  Transmission Date: 20200714
  Serious: Yes (Other)
  Sender: FDA-Public Use
  Company Number: None

PATIENT

DRUGS (1)
  1. AVANOS 24 ORAL CARE KIT 97014 [CHLORHEXIDINE GLUCONATE] [Suspect]
     Active Substance: CHLORHEXIDINE GLUCONATE

REACTIONS (3)
  - Lip swelling [None]
  - Swelling face [None]
  - Swollen tongue [None]

NARRATIVE: CASE EVENT DATE: 20200615
